FAERS Safety Report 21296722 (Version 5)
Quarter: 2022Q4

REPORT INFORMATION
  Report Type: Spontaneous
  Country: JP (occurrence: JP)
  Receive Date: 20220906
  Receipt Date: 20221226
  Transmission Date: 20230113
  Serious: Yes (Death, Other)
  Sender: FDA-Public Use
  Company Number: JP-JNJFOC-20220861275

PATIENT
  Age: 43 Year
  Sex: Female

DRUGS (10)
  1. OPSUMIT [Suspect]
     Active Substance: MACITENTAN
     Indication: Pulmonary arterial hypertension
     Route: 048
     Dates: start: 201907
  2. EPOPROSTENOL [Suspect]
     Active Substance: EPOPROSTENOL
     Indication: Pulmonary arterial hypertension
     Dosage: DOSE UNKNOWN
     Route: 041
  3. UPTRAVI [Suspect]
     Active Substance: SELEXIPAG
     Indication: Pulmonary arterial hypertension
     Route: 048
  4. ADEMPAS [Concomitant]
     Active Substance: RIOCIGUAT
     Indication: Pulmonary arterial hypertension
     Route: 048
     Dates: start: 201907
  5. ADEMPAS [Concomitant]
     Active Substance: RIOCIGUAT
     Route: 048
  6. TREPROSTINIL [Concomitant]
     Active Substance: TREPROSTINIL
     Indication: Pulmonary arterial hypertension
     Dosage: DOSE UNKNOWN
     Route: 058
     Dates: start: 202008
  7. DOBUTAMINE [Concomitant]
     Active Substance: DOBUTAMINE HYDROCHLORIDE
  8. NOREPINEPHRINE [Concomitant]
     Active Substance: NOREPINEPHRINE
  9. RIOCIGUAT [Concomitant]
     Active Substance: RIOCIGUAT
     Indication: Pulmonary arterial hypertension
     Dosage: 1.5MG-7.5MG
     Route: 048
  10. TREPROSTINIL [Concomitant]
     Active Substance: TREPROSTINIL
     Indication: Pulmonary arterial hypertension
     Dosage: DOSE UNKNOWN
     Route: 058

REACTIONS (19)
  - Pulmonary arterial hypertension [Fatal]
  - Cardio-respiratory arrest [Unknown]
  - Hypoxic-ischaemic encephalopathy [Unknown]
  - Right ventricular failure [Unknown]
  - Congestive hepatopathy [Unknown]
  - Ascites [Unknown]
  - Gastric haemorrhage [Unknown]
  - Pericardial effusion [Unknown]
  - Labile blood pressure [Unknown]
  - Spleen congestion [Unknown]
  - Generalised oedema [Unknown]
  - Pleural effusion [Unknown]
  - Epistaxis [Unknown]
  - Peritoneal haematoma [Unknown]
  - Extramedullary haemopoiesis [Unknown]
  - Marrow hyperplasia [Unknown]
  - Hepatic cyst [Unknown]
  - Adenoma benign [Unknown]
  - Therapeutic product effect incomplete [Unknown]
